FAERS Safety Report 8160840-2 (Version None)
Quarter: 2012Q1

REPORT INFORMATION
  Report Type: 
  Country: None (occurrence: None)
  Receive Date: 20120223
  Receipt Date: 20120217
  Transmission Date: 20120608
  Serious: Yes (Other)
  Sender: FDA-Public Use
  Company Number: PHHY2012DE014543

PATIENT
  Age: 75 Year
  Sex: Female

DRUGS (9)
  1. SIMVASTATIN [Concomitant]
     Dosage: 40 MG
  2. GLYBURIDE [Concomitant]
     Indication: TYPE 2 DIABETES MELLITUS
     Dosage: 3.5 MG, (1 DF QDIN THE MORNING + ? DF QD IN THE EVENING)
  3. EXFORGE HCT [Suspect]
     Dosage: 1 DF, QD (160 MG VALS, 10 MG AMLO AND 12.5 MG HYDRO)
     Route: 048
  4. ASPIRIN [Concomitant]
     Dosage: 1 DF, QD
  5. METFORMIN HCL [Concomitant]
     Dosage: 1 DF, QD
  6. CARVEDILOL [Concomitant]
     Dosage: 0.5 DF, BID
  7. RASILEZ [Suspect]
     Dosage: 1 DF, QD (300 MG )
     Route: 048
  8. CORTISONE ACETATE [Concomitant]
     Indication: OSTEOARTHRITIS
     Dosage: UNK
  9. EXFORGE HCT [Suspect]
     Dosage: 1 DF, QD (320 MG VALS, 10 MG AMLO AND 25 MG HYDRO)
     Route: 048

REACTIONS (2)
  - BLOOD PRESSURE DECREASED [None]
  - BLOOD GLUCOSE INCREASED [None]
